FAERS Safety Report 13190744 (Version 1)
Quarter: 2017Q1

REPORT INFORMATION
  Report Type: Spontaneous
  Country: US (occurrence: US)
  Receive Date: 20170206
  Receipt Date: 20170206
  Transmission Date: 20170428
  Serious: Yes (Death)
  Sender: FDA-Public Use
  Company Number: US-BEH-2017077812

PATIENT
  Sex: Male
  Weight: 68.27 kg

DRUGS (25)
  1. CALCIUM +D3 [Concomitant]
     Active Substance: CALCIUM\CHOLECALCIFEROL
  2. GABAPENTIN. [Concomitant]
     Active Substance: GABAPENTIN
  3. COMBIVENT [Concomitant]
     Active Substance: ALBUTEROL SULFATE\IPRATROPIUM BROMIDE
  4. RISPERDAL [Concomitant]
     Active Substance: RISPERIDONE
  5. HIZENTRA [Suspect]
     Active Substance: HUMAN IMMUNOGLOBULIN G
     Dosage: UNK
     Route: 058
  6. VITAMIN C [Concomitant]
     Active Substance: ASCORBIC ACID
  7. GLUCOSAMINE [Concomitant]
     Active Substance: GLUCOSAMINE
  8. HIZENTRA [Suspect]
     Active Substance: HUMAN IMMUNOGLOBULIN G
     Indication: IMMUNODEFICIENCY COMMON VARIABLE
     Dosage: 10 G, UNK
     Route: 058
     Dates: start: 20150917
  9. ZITHROMAX [Concomitant]
     Active Substance: AZITHROMYCIN DIHYDRATE
  10. ALENDRONATE [Concomitant]
     Active Substance: ALENDRONATE SODIUM
  11. MULTIVITAMIN                       /00097801/ [Concomitant]
     Active Substance: VITAMINS
  12. PROTONIX [Concomitant]
     Active Substance: PANTOPRAZOLE SODIUM
  13. FERROUS SULFATE. [Concomitant]
     Active Substance: FERROUS SULFATE
  14. PREDNISONE. [Concomitant]
     Active Substance: PREDNISONE
  15. WARFARIN [Concomitant]
     Active Substance: WARFARIN
  16. VFEND [Concomitant]
     Active Substance: VORICONAZOLE
  17. PRAVASTATIN. [Concomitant]
     Active Substance: PRAVASTATIN
  18. ACYCLOVIR                          /00587301/ [Concomitant]
     Active Substance: ACYCLOVIR
  19. EPIPEN [Concomitant]
     Active Substance: EPINEPHRINE
  20. CELLCEPT [Concomitant]
     Active Substance: MYCOPHENOLATE MOFETIL\MYCOPHENOLATE MOFETIL HYDROCHLORIDE
  21. BACTRIM DS [Concomitant]
     Active Substance: SULFAMETHOXAZOLE\TRIMETHOPRIM
  22. METOPROLOL. [Concomitant]
     Active Substance: METOPROLOL
  23. EFFEXOR XR [Concomitant]
     Active Substance: VENLAFAXINE HYDROCHLORIDE
  24. LASIX [Concomitant]
     Active Substance: FUROSEMIDE
  25. TACROLIMUS. [Concomitant]
     Active Substance: TACROLIMUS

REACTIONS (1)
  - Death [Fatal]
